FAERS Safety Report 8804207 (Version 3)
Quarter: 2013Q1

REPORT INFORMATION
  Report Type: Spontaneous
  Country: US (occurrence: US)
  Receive Date: 20120924
  Receipt Date: 20130326
  Transmission Date: 20140127
  Serious: Yes (Hospitalization)
  Sender: FDA-Public Use
  Company Number: US-BAYER-2012-098122

PATIENT
  Age: 28 Year
  Sex: Female

DRUGS (7)
  1. YAZ [Suspect]
  2. YASMIN [Suspect]
     Dosage: UNK
     Dates: end: 20101101
  3. OCELLA [Suspect]
  4. ASACOL [Concomitant]
  5. AMBIEN [Concomitant]
  6. LLALDA [Concomitant]
     Dosage: 0.25 MG, UNK
     Route: 048
  7. XANAX [Concomitant]
     Dosage: 0.5 MG, UNK
     Route: 048

REACTIONS (2)
  - Injury [None]
  - Pulmonary embolism [None]
